FAERS Safety Report 17112356 (Version 1)
Quarter: 2019Q4

REPORT INFORMATION
  Report Type: Spontaneous
  Country: US (occurrence: US)
  Receive Date: 20191111
  Receipt Date: 20191111
  Transmission Date: 20200122
  Serious: No
  Sender: FDA-Public Use
  Company Number: None

PATIENT
  Age: 58 Year
  Sex: Female

DRUGS (1)
  1. REBIF [Suspect]
     Active Substance: INTERFERON BETA-1A
     Dosage: OTHER
     Route: 058

REACTIONS (8)
  - Hepatic enzyme abnormal [None]
  - Chills [None]
  - Pruritus [None]
  - Renal cancer [None]
  - Tremor [None]
  - Urticaria [None]
  - Influenza like illness [None]
  - Depression [None]

NARRATIVE: CASE EVENT DATE: 20191111
